FAERS Safety Report 6070720-4 (Version None)
Quarter: 2009Q1

REPORT INFORMATION
  Report Type: 
  Country: None (occurrence: None)
  Receive Date: 20090209
  Receipt Date: 20090127
  Transmission Date: 20090719
  Serious: Yes (Hospitalization)
  Sender: FDA-Public Use
  Company Number: FR-ROCHE-586486

PATIENT
  Sex: Female
  Weight: 62 kg

DRUGS (8)
  1. CAPECITABINE [Suspect]
     Dosage: CUMULATIVE DOSE: 37700 MG
     Route: 048
     Dates: start: 20080715
  2. CAPECITABINE [Suspect]
     Dosage: CUMULATIVE DOSE: 39500 MG
     Route: 048
  3. OXALIPLATIN [Suspect]
     Dosage: CUMULATIVE DOSE: 258 MG
     Route: 042
     Dates: start: 20080715
  4. OXALIPLATIN [Suspect]
     Dosage: CUMULATIVE DOSE 341 MG
     Route: 042
  5. TERALITHE [Concomitant]
     Dosage: DRUG: TERALITHE 250
  6. ALPRAZOLAM [Concomitant]
  7. ZYPREXA [Concomitant]
  8. MEPRONIZINE [Concomitant]

REACTIONS (8)
  - ACUTE RESPIRATORY FAILURE [None]
  - CARDIOGENIC SHOCK [None]
  - DIARRHOEA [None]
  - FOREIGN BODY TRAUMA [None]
  - GENERAL PHYSICAL HEALTH DETERIORATION [None]
  - KLEBSIELLA INFECTION [None]
  - PULMONARY EMBOLISM [None]
  - URINARY TRACT INFECTION ENTEROCOCCAL [None]
